FAERS Safety Report 10069386 (Version 2)
Quarter: 2014Q2

REPORT INFORMATION
  Report Type: Spontaneous
  Country: US (occurrence: US)
  Receive Date: 20140410
  Receipt Date: 20140515
  Transmission Date: 20141212
  Serious: No
  Sender: FDA-Public Use
  Company Number: US-B.I. PHARMACEUTICALS,INC./RIDGEFIELD-2014-BI-14199BP

PATIENT
  Age: 86 Year
  Sex: Male
  Weight: 98.42 kg

DRUGS (6)
  1. TRADJENTA [Suspect]
     Indication: DIABETES MELLITUS
     Dosage: 5 MG
     Route: 048
     Dates: start: 20140225
  2. AMLODIPINE [Concomitant]
     Indication: HYPERTENSION
     Route: 048
     Dates: start: 20130521
  3. CARVEDILOL [Concomitant]
     Indication: HYPERTENSION
     Dosage: 25 MG
     Route: 048
     Dates: start: 20130521
  4. CRESTOR [Concomitant]
     Indication: HYPERLIPIDAEMIA
     Route: 048
     Dates: start: 20140314
  5. DONEPEZIL [Concomitant]
     Indication: DEMENTIA
     Dosage: 10 MG
     Route: 048
     Dates: start: 20131013, end: 20140315
  6. HCTZ [Concomitant]
     Indication: HYPERTENSION
     Route: 065

REACTIONS (1)
  - Night sweats [Recovered/Resolved]
